FAERS Safety Report 6219672-4 (Version None)
Quarter: 2009Q2

REPORT INFORMATION
  Report Type: 
  Country: None (occurrence: None)
  Receive Date: 20090609
  Receipt Date: 20090219
  Transmission Date: 20091009
  Serious: Yes (Other)
  Sender: FDA-Public Use
  Company Number: AT-CELGENEUS-009-21880-09040048

PATIENT
  Sex: Male

DRUGS (8)
  1. REVLIMID [Suspect]
     Indication: MULTIPLE MYELOMA
     Route: 048
     Dates: start: 20080603
  2. REVLIMID [Suspect]
     Route: 048
     Dates: start: 20080702
  3. REVLIMID [Suspect]
     Route: 048
     Dates: start: 20080801
  4. REVLIMID [Suspect]
     Route: 048
     Dates: start: 20080829
  5. DEXAMETHASONE [Concomitant]
     Indication: MULTIPLE MYELOMA
     Route: 048
     Dates: start: 20080603
  6. DEXAMETHASONE [Concomitant]
     Route: 048
     Dates: start: 20080702
  7. DEXAMETHASONE [Concomitant]
     Route: 048
     Dates: start: 20080801
  8. ASPIRIN [Concomitant]
     Indication: THROMBOSIS PROPHYLAXIS
     Route: 065

REACTIONS (3)
  - CARDIAC FAILURE [None]
  - HYPOTENSION [None]
  - NEPHROTIC SYNDROME [None]
